FAERS Safety Report 4325870-7 (Version None)
Quarter: 2004Q1

REPORT INFORMATION
  Report Type: 
  Country: None (occurrence: None)
  Receive Date: 20040329
  Receipt Date: 20040212
  Transmission Date: 20041129
  Serious: Yes (Disabling, Other)
  Sender: FDA-Public Use
  Company Number: US-MERCK-0402USA00996

PATIENT
  Age: 42 Year
  Sex: Female
  Weight: 105 kg

DRUGS (4)
  1. INVANZ [Suspect]
     Indication: ABSCESS LIMB
     Route: 041
     Dates: start: 20030915, end: 20030919
  2. LEVAQUIN [Concomitant]
     Indication: ABSCESS
     Route: 065
     Dates: start: 20030926, end: 20031003
  3. FLAGYL [Concomitant]
     Indication: ABSCESS
     Route: 065
     Dates: start: 20030926, end: 20031003
  4. VANCOMYCIN [Concomitant]
     Indication: ABSCESS
     Route: 042
     Dates: start: 20031003, end: 20031017

REACTIONS (2)
  - ABSCESS [None]
  - DEEP VEIN THROMBOSIS [None]
